FAERS Safety Report 11058654 (Version 1)
Quarter: 2015Q2

REPORT INFORMATION
  Report Type: Spontaneous
  Country: GB (occurrence: GB)
  Receive Date: 20150423
  Receipt Date: 20150423
  Transmission Date: 20150821
  Serious: Yes (Congenital Anomaly)
  Sender: FDA-Public Use
  Company Number: GB-WATSON-2015-08842

PATIENT
  Age: 3 Month
  Sex: Male
  Weight: 3 kg

DRUGS (2)
  1. FOLIC ACID (UNKNOWN) [Suspect]
     Active Substance: FOLIC ACID
     Indication: PREGNANCY
     Dosage: UNK
     Route: 064
     Dates: start: 20140417, end: 20140731
  2. MMR VACCIN [Suspect]
     Active Substance: MEASLES-MUMPS-RUBELLA VIRUS VACCINE
     Indication: IMMUNISATION
     Dosage: UNK
     Route: 064
     Dates: start: 20140305, end: 20140305

REACTIONS (2)
  - Haemoglobin S [Unknown]
  - Foetal exposure during pregnancy [Unknown]
